FAERS Safety Report 15954960 (Version 1)
Quarter: 2019Q1

REPORT INFORMATION
  Report Type: Spontaneous
  Country: CA (occurrence: CA)
  Receive Date: 20190213
  Receipt Date: 20190213
  Transmission Date: 20190417
  Serious: Yes (Other)
  Sender: FDA-Public Use
  Company Number: CA-TEVA-2019-CA-1012423

PATIENT
  Age: 26 Year
  Sex: Female

DRUGS (1)
  1. MISOPROSTOL. [Suspect]
     Active Substance: MISOPROSTOL
     Indication: ABORTION INDUCED

REACTIONS (6)
  - Palpitations [Unknown]
  - Thrombosis [Unknown]
  - Muscle spasms [Unknown]
  - Heart rate abnormal [Unknown]
  - Cardiac flutter [Unknown]
  - Haemorrhage [Unknown]
